FAERS Safety Report 12573275 (Version 2)
Quarter: 2016Q3

REPORT INFORMATION
  Report Type: Spontaneous
  Country: US (occurrence: US)
  Receive Date: 20160720
  Receipt Date: 20160725
  Transmission Date: 20161109
  Serious: No
  Sender: FDA-Public Use
  Company Number: US-HORIZON-RAV-0133-2016

PATIENT
  Age: 5 Year
  Sex: Male

DRUGS (2)
  1. RAVICTI [Suspect]
     Active Substance: GLYCEROL PHENYLBUTYRATE
     Indication: ARGININOSUCCINATE LYASE DEFICIENCY
     Dosage: 1.5 ML THREE TIMES DAILY
     Dates: start: 20160705
  2. ARGININE [Concomitant]
     Active Substance: ARGININE
     Indication: ARGININOSUCCINATE LYASE DEFICIENCY

REACTIONS (1)
  - Vomiting [Unknown]
